FAERS Safety Report 20320137 (Version 1)
Quarter: 2022Q1

REPORT INFORMATION
  Report Type: Spontaneous
  Country: US (occurrence: None)
  Receive Date: 20220111
  Receipt Date: 20220111
  Transmission Date: 20220423
  Serious: No
  Sender: FDA-Public Use
  Company Number: US-ROCHE-2866973

PATIENT
  Sex: Female
  Weight: 54.480 kg

DRUGS (3)
  1. RITUXAN [Suspect]
     Active Substance: RITUXIMAB
     Indication: Rheumatoid arthritis
     Dosage: 1000MG 2 WEEKS APART EVERY 6 MONTHS ;ONGOING: NO
     Route: 042
     Dates: start: 2016, end: 2017
  2. RITUXAN [Suspect]
     Active Substance: RITUXIMAB
     Dosage: 1000MG 2 WEEKS APART EVERY 6 MONTHS ;ONGOING: NO
     Route: 042
     Dates: start: 2017, end: 201903
  3. RITUXAN [Suspect]
     Active Substance: RITUXIMAB
     Dosage: 1000MG 2 WEEKS APART EVERY 6 MONTHS ;ONGOING: YES
     Route: 042
     Dates: start: 202001

REACTIONS (3)
  - Rheumatoid arthritis [Recovered/Resolved]
  - Inflammation [Not Recovered/Not Resolved]
  - Trigger finger [Not Recovered/Not Resolved]

NARRATIVE: CASE EVENT DATE: 20160101
